FAERS Safety Report 13546630 (Version 1)
Quarter: 2017Q2

REPORT INFORMATION
  Report Type: Spontaneous
  Country: GB (occurrence: GB)
  Receive Date: 20170515
  Receipt Date: 20170515
  Transmission Date: 20170830
  Serious: Yes (Other)
  Sender: FDA-Public Use
  Company Number: GB-MYLANLABS-2017M1028660

PATIENT

DRUGS (4)
  1. PIOGLITAZONE. [Suspect]
     Active Substance: PIOGLITAZONE
     Indication: DIABETES MELLITUS
     Dosage: MORNING
     Route: 048
     Dates: start: 20150519, end: 20170421
  2. SILDENAFIL CITRATE. [Concomitant]
     Active Substance: SILDENAFIL CITRATE
  3. HUMULIN M3 [Suspect]
     Active Substance: INSULIN HUMAN
     Dosage: 24 IU, BID
  4. METFORMIN [Suspect]
     Active Substance: METFORMIN HYDROCHLORIDE
     Dosage: 1 G, BID

REACTIONS (4)
  - Dyspnoea [Unknown]
  - Cardiac failure [Recovering/Resolving]
  - Acute myocardial infarction [Unknown]
  - Medication monitoring error [Unknown]

NARRATIVE: CASE EVENT DATE: 20170420
